FAERS Safety Report 6075364-6 (Version None)
Quarter: 2009Q1

REPORT INFORMATION
  Report Type: 
  Country: None (occurrence: None)
  Receive Date: 20090212
  Receipt Date: 20090204
  Transmission Date: 20090719
  Serious: Yes (Death)
  Sender: FDA-Public Use
  Company Number: BE-ABBOTT-09P-013-0499850-00

PATIENT
  Sex: Female
  Weight: 43 kg

DRUGS (10)
  1. KALETRA [Suspect]
     Indication: HIV INFECTION
     Dosage: 100MG/25MG
     Dates: start: 20080911, end: 20081029
  2. COZAAR [Concomitant]
     Indication: HYPERTENSION
  3. MOXON [Concomitant]
     Indication: HYPERTENSION
  4. BIFETERAL [Concomitant]
     Indication: ENCEPHALOPATHY
  5. INVIRASE [Concomitant]
     Indication: HIV INFECTION
     Dates: start: 20080822
  6. VIREAD [Concomitant]
     Indication: HIV INFECTION
     Dates: start: 20080625
  7. EPIVIR [Concomitant]
     Indication: HIV INFECTION
     Dates: start: 20050426
  8. MARCUMAR [Concomitant]
     Indication: PULMONARY EMBOLISM
  9. MARCUMAR [Concomitant]
     Indication: PORTAL SHUNT
  10. OMEPRAZOLE [Concomitant]
     Indication: GASTRIC ULCER

REACTIONS (2)
  - CEREBRAL HAEMORRHAGE [None]
  - FALL [None]
